FAERS Safety Report 24029531 (Version 3)
Quarter: 2024Q3

REPORT INFORMATION
  Report Type: Spontaneous
  Country: CA (occurrence: CA)
  Receive Date: 20240628
  Receipt Date: 20240801
  Transmission Date: 20241017
  Serious: Yes (Hospitalization, Other)
  Sender: SK LIFE SCIENCE
  Company Number: CA-SK LIFE SCIENCE, INC.-SKPVG-2024-001416

PATIENT

DRUGS (15)
  1. XCOPRI [Suspect]
     Active Substance: CENOBAMATE
     Indication: Epilepsy
     Dosage: UNK
     Route: 048
     Dates: start: 20240216
  2. XCOPRI [Suspect]
     Active Substance: CENOBAMATE
     Indication: Partial seizures
     Dosage: 100 MILLIGRAM, DAILY
     Route: 048
     Dates: start: 2024, end: 2024
  3. XCOPRI [Suspect]
     Active Substance: CENOBAMATE
     Dosage: 150 MILLIGRAM, DAILY
     Route: 048
     Dates: start: 2024, end: 2024
  4. XCOPRI [Suspect]
     Active Substance: CENOBAMATE
     Dosage: 100 MILLIGRAM, DAILY
     Route: 048
     Dates: start: 2024, end: 2024
  5. XCOPRI [Suspect]
     Active Substance: CENOBAMATE
     Dosage: 75 MILLIGRAM, DAILY
     Route: 048
     Dates: start: 2024
  6. CLOBAZAM [Suspect]
     Active Substance: CLOBAZAM
     Indication: Product used for unknown indication
     Dosage: 20 MILLIGRAM, QHS
     Route: 065
  7. CLOBAZAM [Suspect]
     Active Substance: CLOBAZAM
     Dosage: 10 MILLIGRAM, QHS
     Route: 065
  8. CLOBAZAM [Suspect]
     Active Substance: CLOBAZAM
     Dosage: 5 MILLIGRAM, QHS
     Route: 065
     Dates: start: 20240516
  9. CLOBAZAM [Suspect]
     Active Substance: CLOBAZAM
     Dosage: 5 MILLIGRAM, BID
     Route: 065
  10. LEVETIRACETAM [Suspect]
     Active Substance: LEVETIRACETAM
     Indication: Product used for unknown indication
     Dosage: 750 MILLIGRAM, BID
     Route: 065
  11. LEVETIRACETAM [Suspect]
     Active Substance: LEVETIRACETAM
     Dosage: 500 MILLIGRAM, BID
     Route: 065
  12. TOPIRAMATE [Suspect]
     Active Substance: TOPIRAMATE
     Indication: Product used for unknown indication
     Dosage: 150 MG AM AND 200 MG HS
     Route: 065
  13. TOPIRAMATE [Suspect]
     Active Substance: TOPIRAMATE
     Dosage: 100MG AM-150MG HS
     Route: 065
  14. TOPIRAMATE [Suspect]
     Active Substance: TOPIRAMATE
     Dosage: 150 MG AM AND 200 MG HS
     Route: 065
  15. CARBAMAZEPINE [Suspect]
     Active Substance: CARBAMAZEPINE
     Indication: Product used for unknown indication
     Dosage: 100 MILLIGRAM, TID
     Route: 048

REACTIONS (8)
  - Coma [Unknown]
  - Pneumonia aspiration [Unknown]
  - Somnolence [Not Recovered/Not Resolved]
  - Condition aggravated [Unknown]
  - Seizure [Recovering/Resolving]
  - Off label use [Unknown]
  - Physical deconditioning [Unknown]
  - Drug interaction [Unknown]

NARRATIVE: CASE EVENT DATE: 20240101
